FAERS Safety Report 13967567 (Version 2)
Quarter: 2017Q4

REPORT INFORMATION
  Report Type: Report from Study
  Country: None (occurrence: US)
  Receive Date: 20170914
  Receipt Date: 20171115
  Transmission Date: 20180320
  Serious: Yes (Other)
  Sender: FDA-Public Use
  Company Number: US-ABBVIE-16K-163-1776905-00

PATIENT
  Age: 58 Year
  Sex: Female

DRUGS (2)
  1. HUMIRA [Suspect]
     Active Substance: ADALIMUMAB
     Indication: PSORIATIC ARTHROPATHY
     Route: 058
     Dates: start: 20161025
  2. HUMIRA [Suspect]
     Active Substance: ADALIMUMAB
     Indication: RHEUMATOID ARTHRITIS

REACTIONS (32)
  - Gait disturbance [Recovering/Resolving]
  - Cystitis [Recovered/Resolved]
  - Joint stiffness [Recovering/Resolving]
  - Arthralgia [Unknown]
  - Pneumonitis [Unknown]
  - Pain [Unknown]
  - Depression [Recovered/Resolved]
  - Pain in extremity [Unknown]
  - Arthralgia [Unknown]
  - Intervertebral disc protrusion [Unknown]
  - Pain [Recovered/Resolved]
  - Injection site erythema [Recovered/Resolved]
  - Nephrolithiasis [Recovered/Resolved]
  - Neck pain [Unknown]
  - Injection site pruritus [Recovered/Resolved]
  - Peripheral swelling [Unknown]
  - Musculoskeletal stiffness [Unknown]
  - Hyperhidrosis [Not Recovered/Not Resolved]
  - Urinary tract infection [Unknown]
  - Peripheral swelling [Unknown]
  - Constipation [Unknown]
  - Fatigue [Unknown]
  - Chills [Not Recovered/Not Resolved]
  - Anxiety [Recovered/Resolved]
  - Sinusitis [Unknown]
  - Rash [Recovered/Resolved]
  - Nasal discharge discolouration [Unknown]
  - Mobility decreased [Recovering/Resolving]
  - Carpal tunnel syndrome [Unknown]
  - Injection site warmth [Recovered/Resolved]
  - Nerve compression [Unknown]
  - Pain in extremity [Unknown]

NARRATIVE: CASE EVENT DATE: 2016
